FAERS Safety Report 21084727 (Version 1)
Quarter: 2022Q3

REPORT INFORMATION
  Report Type: Spontaneous
  Country: US (occurrence: US)
  Receive Date: 20220714
  Receipt Date: 20220714
  Transmission Date: 20221026
  Serious: No
  Sender: FDA-Public Use
  Company Number: US-PFIZER INC-PV202200019605

PATIENT
  Age: 75 Year
  Sex: Female

DRUGS (3)
  1. ZITHROMAX [Suspect]
     Active Substance: AZITHROMYCIN DIHYDRATE
     Indication: Oropharyngeal pain
     Dosage: UNK
     Dates: start: 202204
  2. ZITHROMAX [Suspect]
     Active Substance: AZITHROMYCIN DIHYDRATE
     Indication: Sinusitis
  3. ALBUTEROL SULFATE [Concomitant]
     Active Substance: ALBUTEROL SULFATE
     Dosage: UNK

REACTIONS (1)
  - Upper-airway cough syndrome [Unknown]

NARRATIVE: CASE EVENT DATE: 20220101
